FAERS Safety Report 8573770-9 (Version None)
Quarter: 2012Q3

REPORT INFORMATION
  Report Type: 
  Country: None (occurrence: None)
  Receive Date: 20120806
  Receipt Date: 20120724
  Transmission Date: 20120928
  Serious: Yes (Hospitalization)
  Sender: FDA-Public Use
  Company Number: FR-GLAXOSMITHKLINE-B0816709A

PATIENT
  Sex: Male
  Weight: 25 kg

DRUGS (1)
  1. FLUTICASONE PROPIONATE [Suspect]
     Indication: ASTHMA
     Route: 055
     Dates: start: 20100901, end: 20120101

REACTIONS (9)
  - TACHYPNOEA [None]
  - CHEST PAIN [None]
  - LOSS OF CONSCIOUSNESS [None]
  - VERTIGO [None]
  - CARDIAC DISORDER [None]
  - HYPERVENTILATION [None]
  - TACHYCARDIA [None]
  - AMNESIA [None]
  - CHEST DISCOMFORT [None]
